FAERS Safety Report 5378010-X (Version None)
Quarter: 2007Q2

REPORT INFORMATION
  Report Type: 
  Country: None (occurrence: None)
  Receive Date: 20070629
  Receipt Date: 20070613
  Transmission Date: 20071010
  Serious: Yes (Other)
  Sender: FDA-Public Use
  Company Number: FSC_00123_2007

PATIENT
  Age: 54 Year
  Sex: Female

DRUGS (2)
  1. VERAPAMIL [Suspect]
  2. FIORICET [Suspect]

REACTIONS (8)
  - BLOOD PRESSURE DECREASED [None]
  - COLON GANGRENE [None]
  - ILEAL GANGRENE [None]
  - MULTIPLE DRUG OVERDOSE INTENTIONAL [None]
  - NODAL RHYTHM [None]
  - PULSE ABNORMAL [None]
  - SOMNOLENCE [None]
  - SUICIDE ATTEMPT [None]
